FAERS Safety Report 8818972 (Version 1)
Quarter: 2012Q4

REPORT INFORMATION
  Report Type: Spontaneous
  Country: DK (occurrence: None)
  Receive Date: 20121003
  Receipt Date: 20121003
  Transmission Date: 20130627
  Serious: Yes (Hospitalization)
  Sender: FDA-Public Use
  Company Number: 2012MA011761

PATIENT
  Age: 86 Year
  Sex: Female

DRUGS (8)
  1. DONEPEZIL [Suspect]
     Indication: DEMENTIA ALZHEIMER^S TYPE
     Route: 048
     Dates: start: 20120523, end: 20120912
  2. PAMOL [Concomitant]
  3. TRADOLAN [Concomitant]
  4. PANTOPRAZOL [Concomitant]
  5. ACTAVIS [Concomitant]
  6. MAGNYL ^DAK^ [Concomitant]
  7. AMISULPRIDE [Concomitant]
  8. SERTRALIN ACTAVIS [Concomitant]

REACTIONS (2)
  - Lung infection [None]
  - Chronic obstructive pulmonary disease [None]
